FAERS Safety Report 22288906 (Version 1)
Quarter: 2023Q2

REPORT INFORMATION
  Report Type: Spontaneous
  Country: DE (occurrence: DE)
  Receive Date: 20230505
  Receipt Date: 20230505
  Transmission Date: 20230722
  Serious: Yes (Death, Other)
  Sender: FDA-Public Use
  Company Number: None

PATIENT
  Age: 22 Year
  Sex: Male
  Weight: 65 kg

DRUGS (13)
  1. TAVOR (LORAZEPAM) [Suspect]
     Active Substance: LORAZEPAM
     Dosage: UNK
     Route: 048
     Dates: start: 19950623
  2. MIDAZOLAM [Suspect]
     Active Substance: MIDAZOLAM
     Dosage: UNK
  3. OXAZEPAM [Suspect]
     Active Substance: OXAZEPAM
     Dosage: UNK
     Route: 048
     Dates: start: 19950518, end: 19950519
  4. CLOZAPINE [Suspect]
     Active Substance: CLOZAPINE
     Indication: Psychotic disorder
     Dosage: UNK
     Route: 048
     Dates: start: 19950519
  5. CLOZAPINE [Suspect]
     Active Substance: CLOZAPINE
     Dosage: UNK
     Route: 048
     Dates: end: 19950806
  6. ZOPICLONE [Suspect]
     Active Substance: ZOPICLONE
     Indication: Sleep disorder
     Dosage: UNK
     Route: 048
     Dates: start: 19950705
  7. NORDAZEPAM [Suspect]
     Active Substance: NORDAZEPAM
     Dosage: UNK
  8. CLOPENTHIXOL HYDROCHLORIDE [Suspect]
     Active Substance: CLOPENTHIXOL HYDROCHLORIDE
     Dosage: UNK
     Route: 030
  9. FLUPHENAZINE DECANOATE [Suspect]
     Active Substance: FLUPHENAZINE DECANOATE
     Dosage: UNK
     Dates: start: 19950730
  10. ISOPROMETHAZINE HYDROCHLORIDE [Suspect]
     Active Substance: ISOPROMETHAZINE HYDROCHLORIDE
     Dosage: UNK
     Dates: start: 19950623
  11. VALIUM [Suspect]
     Active Substance: DIAZEPAM
     Dosage: UNK
     Route: 048
     Dates: start: 199508
  12. HALDOL [Suspect]
     Active Substance: HALOPERIDOL
     Dosage: UNK
  13. FLUNITRAZEPAM [Suspect]
     Active Substance: FLUNITRAZEPAM
     Dosage: UNK
     Route: 048
     Dates: start: 19950623

REACTIONS (5)
  - Pulmonary oedema [Fatal]
  - Respiratory depression [Fatal]
  - Cardiac arrest [Fatal]
  - Sudden death [Fatal]
  - Suicidal ideation [Unknown]

NARRATIVE: CASE EVENT DATE: 19950816
